FAERS Safety Report 5268442-2 (Version None)
Quarter: 2007Q1

REPORT INFORMATION
  Report Type: 
  Country: None (occurrence: None)
  Receive Date: 20070319
  Receipt Date: 20070312
  Transmission Date: 20070707
  Serious: Yes (Life-Threatening)
  Sender: FDA-Public Use
  Company Number: BW-GLAXOSMITHKLINE-B0462253A

PATIENT
  Age: 1 Month
  Sex: Male
  Weight: 2.5 kg

DRUGS (4)
  1. TRIZIVIR [Suspect]
     Indication: ANTIVIRAL PROPHYLAXIS
     Dosage: 1TAB TWICE PER DAY
     Dates: start: 20061123
  2. ZIDOVUDINE [Concomitant]
     Indication: PROPHYLAXIS
     Dosage: 1.1ML TWICE PER DAY
     Route: 048
     Dates: end: 20070228
  3. NEVIRAPINE [Concomitant]
     Indication: HIV INFECTION
     Dosage: 1TAB TWICE PER DAY
     Dates: start: 20061123
  4. AMPICILLIN [Concomitant]

REACTIONS (3)
  - DRUG EXPOSURE DURING PREGNANCY [None]
  - DRUG EXPOSURE VIA BREAST MILK [None]
  - NEUTROPENIA [None]
